FAERS Safety Report 5589984-6 (Version None)
Quarter: 2008Q1

REPORT INFORMATION
  Report Type: 
  Country: None (occurrence: None)
  Receive Date: 20080114
  Receipt Date: 20080102
  Transmission Date: 20080703
  Serious: Yes (Other)
  Sender: FDA-Public Use
  Company Number: CH-ROCHE-539636

PATIENT
  Age: 26 Year
  Sex: Female

DRUGS (3)
  1. VALIUM [Suspect]
     Indication: HYPERVENTILATION
     Dosage: IN FRACTIONATED DOSES
     Route: 048
  2. TEMESTA [Suspect]
     Indication: HYPERVENTILATION
     Dosage: DRUG REPORTED AS: 'TEMESTA EXPIDET'
     Route: 065
  3. MORPHINE [Suspect]
     Indication: HYPERVENTILATION
     Route: 048

REACTIONS (1)
  - APNOEA [None]
